FAERS Safety Report 20708708 (Version 2)
Quarter: 2022Q3

REPORT INFORMATION
  Report Type: Spontaneous
  Country: CA (occurrence: CA)
  Receive Date: 20220414
  Receipt Date: 20220902
  Transmission Date: 20221027
  Serious: Yes (Other)
  Sender: FDA-Public Use
  Company Number: CA-drreddys-SPO/CAN/22/0148728

PATIENT
  Age: 82 Year
  Sex: Male

DRUGS (3)
  1. ZOLEDRONIC [Suspect]
     Active Substance: ZOLEDRONIC ACID
     Indication: Product used for unknown indication
     Dates: start: 20181203
  2. ZOLEDRONIC [Suspect]
     Active Substance: ZOLEDRONIC ACID
     Dosage: 5 MG/100ML
     Route: 051
     Dates: start: 20220404
  3. ZOLEDRONIC [Suspect]
     Active Substance: ZOLEDRONIC ACID

REACTIONS (1)
  - Blood pressure increased [Unknown]

NARRATIVE: CASE EVENT DATE: 20220404
